FAERS Safety Report 19270530 (Version 1)
Quarter: 2021Q2

REPORT INFORMATION
  Report Type: Other
  Country: CA (occurrence: CA)
  Receive Date: 20210518
  Receipt Date: 20210518
  Transmission Date: 20210717
  Serious: Yes (Other)
  Sender: FDA-Public Use
  Company Number: CA-ASSERTIO THERAPEUTICS, INC.-CA-2021AST000079

PATIENT

DRUGS (10)
  1. CIMZIA [Suspect]
     Active Substance: CERTOLIZUMAB PEGOL
     Dosage: 400 MG, MONTHLY
     Route: 058
  2. NAPROXEN. [Suspect]
     Active Substance: NAPROXEN
     Indication: AXIAL SPONDYLOARTHRITIS
     Dosage: 500 MG, BID
  3. ERGOCALCIFEROL. [Concomitant]
     Active Substance: ERGOCALCIFEROL
     Indication: PRODUCT USED FOR UNKNOWN INDICATION
  4. OTEZLA [Concomitant]
     Active Substance: APREMILAST
     Indication: PRODUCT USED FOR UNKNOWN INDICATION
  5. CIMZIA [Suspect]
     Active Substance: CERTOLIZUMAB PEGOL
     Indication: PRODUCT USED FOR UNKNOWN INDICATION
     Dosage: 200 MG, UNK
     Route: 058
  6. DICLOFENAC POTASSIUM. [Suspect]
     Active Substance: DICLOFENAC POTASSIUM
     Indication: PSORIASIS
     Dosage: 100 MG, QD
     Route: 048
  7. DICLOFENAC POTASSIUM. [Suspect]
     Active Substance: DICLOFENAC POTASSIUM
     Indication: PSORIATIC ARTHROPATHY
     Dosage: 50 MG, BID
     Route: 048
  8. DESOXIMETASONE. [Suspect]
     Active Substance: DESOXIMETASONE
     Indication: PRODUCT USED FOR UNKNOWN INDICATION
     Route: 058
  9. CELECOXIB. [Suspect]
     Active Substance: CELECOXIB
     Indication: PRODUCT USED FOR UNKNOWN INDICATION
     Dosage: 200 MG, QD
     Route: 048
  10. MELOXICAM. [Suspect]
     Active Substance: MELOXICAM
     Indication: PRODUCT USED FOR UNKNOWN INDICATION
     Dosage: 7.5 MG, BID
     Route: 065

REACTIONS (43)
  - Concomitant disease aggravated [None]
  - Constipation [None]
  - Psoriasis [None]
  - Tendon pain [None]
  - Dactylitis [None]
  - Dandruff [None]
  - Discomfort [None]
  - Renal impairment [None]
  - Drug ineffective [None]
  - Lymphadenopathy [None]
  - Neck pain [None]
  - Osteoarthritis [None]
  - Pain [None]
  - Soft tissue mass [None]
  - Tenosynovitis [None]
  - Back pain [None]
  - Central pain syndrome [None]
  - Fatigue [None]
  - Paraesthesia [None]
  - Sacroiliitis [None]
  - Sleep disorder [None]
  - Bursitis [None]
  - Grip strength decreased [None]
  - Intervertebral disc degeneration [None]
  - Myofascial pain syndrome [None]
  - Nail dystrophy [None]
  - Cervical radiculopathy [None]
  - Enthesopathy [None]
  - Fibromyalgia [None]
  - Mobility decreased [None]
  - Neuralgia [None]
  - Abdominal distension [None]
  - Arthralgia [None]
  - Chest pain [None]
  - Gait disturbance [None]
  - Meralgia paraesthetica [None]
  - Musculoskeletal stiffness [None]
  - Patellofemoral pain syndrome [None]
  - Axial spondyloarthritis [None]
  - Hyperaesthesia [None]
  - Lymph node pain [None]
  - Soft tissue injury [None]
  - Synovitis [None]
